FAERS Safety Report 6935385-5 (Version None)
Quarter: 2010Q3

REPORT INFORMATION
  Report Type: 
  Country: None (occurrence: None)
  Receive Date: 20100823
  Receipt Date: 20100812
  Transmission Date: 20110219
  Serious: Yes (Hospitalization)
  Sender: FDA-Public Use
  Company Number: US-BIOGENIDEC-2010BI017436

PATIENT
  Age: 54 Year
  Sex: Female
  Weight: 55 kg

DRUGS (13)
  1. AVONEX [Suspect]
     Indication: MULTIPLE SCLEROSIS
     Route: 030
     Dates: start: 19990201, end: 20030101
  2. AVONEX [Suspect]
     Route: 030
     Dates: start: 20030101
  3. PNEUMOVAX VACCINE [Concomitant]
     Dates: start: 20091001
  4. INFLUENZA VACCINE [Concomitant]
     Dates: start: 20091001
  5. SIMVASTATIN [Concomitant]
  6. METOPROLOL TARTRATE [Concomitant]
  7. LISINOPRIL [Concomitant]
  8. PERCOCET [Concomitant]
  9. FENTANYL CITRATE [Concomitant]
     Route: 061
  10. PAXIL [Concomitant]
  11. VITAMIN B6 [Concomitant]
  12. WELLBUTRIN [Concomitant]
  13. ACIPHEX [Concomitant]

REACTIONS (9)
  - BLOOD CHOLESTEROL INCREASED [None]
  - CARDIAC ARREST [None]
  - CORONARY ARTERY THROMBOSIS [None]
  - DYSPNOEA [None]
  - FEELING ABNORMAL [None]
  - HIGH DENSITY LIPOPROTEIN DECREASED [None]
  - HYPERTENSION [None]
  - PROCEDURAL PAIN [None]
  - PYREXIA [None]
